FAERS Safety Report 7575592-4 (Version None)
Quarter: 2011Q2

REPORT INFORMATION
  Report Type: 
  Country: None (occurrence: None)
  Receive Date: 20110627
  Receipt Date: 20110617
  Transmission Date: 20111010
  Serious: Yes (Other)
  Sender: FDA-Public Use
  Company Number: PHHY2011US55199

PATIENT
  Age: 16 Year
  Sex: Male

DRUGS (5)
  1. METHADONE HCL [Suspect]
     Indication: ABDOMINAL PAIN
     Dosage: 40 MG, Q6H
     Route: 048
  2. DEXMEDETOMIDINE [Interacting]
     Dosage: UNK
  3. KETAMINE HCL [Concomitant]
  4. FENTANYL [Interacting]
     Indication: ABDOMINAL PAIN
     Dosage: 600 MG/H, UNK
  5. FENTANYL [Interacting]
     Dosage: 12600 MG, TOTAL

REACTIONS (2)
  - POTENTIATING DRUG INTERACTION [None]
  - HYPERAESTHESIA [None]
